FAERS Safety Report 20301548 (Version 3)
Quarter: 2022Q4

REPORT INFORMATION
  Report Type: Report from Study
  Country: US (occurrence: US)
  Receive Date: 20220105
  Receipt Date: 20221123
  Transmission Date: 20230112
  Serious: Yes (Death)
  Sender: FDA-Public Use
  Company Number: US-PFIZER INC-202200004179

PATIENT

DRUGS (7)
  1. VINCRISTINE SULFATE [Suspect]
     Active Substance: VINCRISTINE SULFATE
     Indication: Acute lymphocytic leukaemia
     Dosage: 1.5MG/M2, MAXIMUM OF 2MG, IV BOLUS OR INFUSION ON DAYS 1, 8, 15 AND 22
  2. METHOTREXATE SODIUM [Suspect]
     Active Substance: METHOTREXATE SODIUM
     Indication: Acute lymphocytic leukaemia
     Dosage: UNK
  3. DEXAMETHASONE [Suspect]
     Active Substance: DEXAMETHASONE
     Indication: Acute lymphocytic leukaemia
     Dosage: 6 MG/M2 PER DAY (ORALLY IN TWO DIVIDED DOSES) ON DAYS 1 TO 21
     Route: 048
  4. CARFILZOMIB [Suspect]
     Active Substance: CARFILZOMIB
     Indication: Acute lymphocytic leukaemia
     Dosage: ADMINISTERED AS AN IV INFUSION OVER 30 MINUTES ON DAY 1
     Route: 041
  5. CARFILZOMIB [Suspect]
     Active Substance: CARFILZOMIB
     Dosage: ADMINISTERED AS AN IV INFUSION OVER 30 MINUTES ON DAYS 2, 8, 9, 15 AND 16
     Route: 041
  6. PEG/L-ASPARAGINASE [Suspect]
     Active Substance: PEGASPARGASE
     Indication: Acute lymphocytic leukaemia
     Dosage: 2500U/M2; IV OVER 60-120 MINUTES ON DAYS 4 AND 18
     Route: 042
  7. DAUNORUBICIN [Suspect]
     Active Substance: DAUNORUBICIN
     Indication: Acute lymphocytic leukaemia
     Dosage: IV BOLUS OR INFUSION ON DAYS 1, 8, 15 AND 22

REACTIONS (3)
  - Bacterial sepsis [Fatal]
  - Fungal sepsis [Fatal]
  - Multiple organ dysfunction syndrome [Fatal]
